FAERS Safety Report 5264431-2 (Version None)
Quarter: 2007Q1

REPORT INFORMATION
  Report Type: 
  Country: None (occurrence: None)
  Receive Date: 20070309
  Receipt Date: 20070307
  Transmission Date: 20070707
  Serious: Yes (Other)
  Sender: FDA-Public Use
  Company Number: 220687

PATIENT
  Age: 7 Year
  Sex: Male
  Weight: 27.9 kg

DRUGS (1)
  1. NUTROPIN [Suspect]
     Indication: GROWTH HORMONE DEFICIENCY
     Dosage: 1.4 MG, 6/WEEK, SUBCUTANEOUS
     Route: 058
     Dates: start: 20011116

REACTIONS (1)
  - PITUITARY TUMOUR BENIGN [None]
